FAERS Safety Report 7904809-9 (Version None)
Quarter: 2011Q4

REPORT INFORMATION
  Report Type: 
  Country: None (occurrence: None)
  Receive Date: 20111109
  Receipt Date: 20111025
  Transmission Date: 20120403
  Serious: Yes (Hospitalization, Other)
  Sender: FDA-Public Use
  Company Number: PHHY2011US10899

PATIENT
  Sex: Male

DRUGS (9)
  1. GLEEVEC [Suspect]
     Dosage: 400 MG, QD
     Route: 048
     Dates: start: 20110108
  2. KLONOPIN [Concomitant]
  3. SERTRALINE HYDROCHLORIDE [Concomitant]
     Dosage: 150 MG, UNK
  4. CLONAZEPAM [Concomitant]
     Dosage: 06 MG, UNK
  5. TRAZODONE HYDROCHLORIDE [Concomitant]
  6. ZOLOFT [Concomitant]
  7. GLEEVEC [Suspect]
     Indication: GASTROINTESTINAL STROMAL TUMOUR
     Dosage: 400 MG, QD
     Route: 048
     Dates: start: 20101201
  8. MIRTAZAPINE [Concomitant]
     Dosage: 10 MG, UNK
  9. IMODIUM [Concomitant]

REACTIONS (15)
  - URINARY TRACT INFECTION [None]
  - RASH PRURITIC [None]
  - NEOPLASM MALIGNANT [None]
  - DIARRHOEA [None]
  - DEPRESSION [None]
  - CONVULSION [None]
  - HYPOCHONDRIASIS [None]
  - PAROSMIA [None]
  - NASAL DISCOMFORT [None]
  - SINUSITIS [None]
  - RASH [None]
  - ABDOMINAL PAIN UPPER [None]
  - BILIARY NEOPLASM [None]
  - GALLBLADDER POLYP [None]
  - ANXIETY [None]
